FAERS Safety Report 6543591-7 (Version None)
Quarter: 2010Q1

REPORT INFORMATION
  Report Type: 
  Country: None (occurrence: None)
  Receive Date: 20100120
  Receipt Date: 20100105
  Transmission Date: 20100710
  Serious: Yes (Death)
  Sender: FDA-Public Use
  Company Number: US-TYCO HEALTHCARE/MALLINCKRODT-T201000064

PATIENT
  Age: 53 Year
  Sex: Female

DRUGS (3)
  1. IMIPRAMINE PAMOATE [Suspect]
     Dosage: UNK
  2. FENTANYL [Suspect]
     Dosage: UNK
  3. PAROXETINE HCL [Suspect]
     Dosage: UNK

REACTIONS (1)
  - DRUG ABUSE [None]
